FAERS Safety Report 6645702-1 (Version None)
Quarter: 2010Q1

REPORT INFORMATION
  Report Type: 
  Country: None (occurrence: None)
  Receive Date: 20100318
  Receipt Date: 20100318
  Transmission Date: 20100710
  Serious: Yes (Life-Threatening)
  Sender: FDA-Public Use
  Company Number: None

PATIENT
  Sex: Female
  Weight: 20.8655 kg

DRUGS (2)
  1. SINGULAIR [Suspect]
     Indication: ASTHMA
     Dosage: 1 TAB DAILY PO
     Route: 048
     Dates: start: 20040210, end: 20100115
  2. FLOVENT [Suspect]
     Indication: ASTHMA
     Dosage: 1 PUFF DAILY PO
     Route: 048
     Dates: start: 20090321, end: 20100128

REACTIONS (11)
  - AGGRESSION [None]
  - DELUSION [None]
  - HALLUCINATION, AUDITORY [None]
  - HALLUCINATION, VISUAL [None]
  - HEADACHE [None]
  - HYPOPHAGIA [None]
  - INSOMNIA [None]
  - NIGHTMARE [None]
  - PSYCHOTIC DISORDER [None]
  - SUICIDAL IDEATION [None]
  - WEIGHT DECREASED [None]
